FAERS Safety Report 7205652-9 (Version None)
Quarter: 2010Q4

REPORT INFORMATION
  Report Type: 
  Country: None (occurrence: None)
  Receive Date: 20101231
  Receipt Date: 20101220
  Transmission Date: 20110411
  Serious: Yes (Other)
  Sender: FDA-Public Use
  Company Number: US-ELI_LILLY_AND_COMPANY-US201010005153

PATIENT
  Sex: Female
  Weight: 65.76 kg

DRUGS (2)
  1. FORTEO [Suspect]
     Indication: OSTEOPOROSIS
     Dosage: 1 D/F, UNKNOWN
  2. FORTEO [Suspect]
     Dosage: 1 D/F, UNKNOWN

REACTIONS (2)
  - FALL [None]
  - HIP FRACTURE [None]
